FAERS Safety Report 21284116 (Version 1)
Quarter: 2022Q3

REPORT INFORMATION
  Report Type: Report from Study
  Country: US (occurrence: None)
  Receive Date: 20220902
  Receipt Date: 20220902
  Transmission Date: 20221027
  Serious: Yes (Hospitalization)
  Sender: FDA-Public Use
  Company Number: 2022A301852

PATIENT
  Sex: Female
  Weight: 109.3 kg

DRUGS (1)
  1. LYNPARZA [Suspect]
     Active Substance: OLAPARIB
     Indication: Breast cancer female
     Route: 048
     Dates: start: 20220622, end: 202208

REACTIONS (3)
  - Immune system disorder [Unknown]
  - White blood cell count abnormal [Unknown]
  - Platelet count decreased [Unknown]
